FAERS Safety Report 17992260 (Version 2)
Quarter: 2020Q3

REPORT INFORMATION
  Report Type: Report from Study
  Country: US (occurrence: US)
  Receive Date: 20200708
  Receipt Date: 20200722
  Transmission Date: 20201103
  Serious: Yes (Other)
  Sender: FDA-Public Use
  Company Number: US-BEIGENE USA INC-BGN-2020-001130

PATIENT

DRUGS (1)
  1. BRUKINSA [Suspect]
     Active Substance: ZANUBRUTINIB
     Indication: B-CELL LYMPHOMA
     Dosage: 160 MILLIGRAM, QD
     Route: 048
     Dates: start: 20200427

REACTIONS (5)
  - Cardiac failure congestive [Unknown]
  - Fatigue [Unknown]
  - Vomiting [Unknown]
  - Swelling [Unknown]
  - Asthenia [Unknown]
